FAERS Safety Report 9605712 (Version 5)
Quarter: 2014Q2

REPORT INFORMATION
  Report Type: Spontaneous
  Country: US (occurrence: US)
  Receive Date: 20131008
  Receipt Date: 20140417
  Transmission Date: 20141212
  Serious: Yes (Hospitalization, Other)
  Sender: FDA-Public Use
  Company Number: US-009507513-1310USA003681

PATIENT
  Sex: Female
  Weight: 89.8 kg

DRUGS (2)
  1. JANUVIA [Suspect]
     Indication: TYPE 2 DIABETES MELLITUS
     Dosage: 25 MG, QD
     Route: 048
     Dates: start: 20100501, end: 20100531
  2. JANUVIA [Suspect]
     Dosage: 25 MG QD
     Route: 048
     Dates: start: 20110913, end: 20120112

REACTIONS (70)
  - Pancreatic carcinoma metastatic [Unknown]
  - Pancreaticoduodenectomy [Unknown]
  - Bile duct stenosis [Unknown]
  - Bile duct stent insertion [Unknown]
  - Metastases to lung [Unknown]
  - Intraductal proliferative breast lesion [Unknown]
  - Pancreatitis chronic [Not Recovered/Not Resolved]
  - Cholangitis [Not Recovered/Not Resolved]
  - Impaired fasting glucose [Recovered/Resolved]
  - Fibrocystic breast disease [Unknown]
  - Transient ischaemic attack [Unknown]
  - Gallbladder disorder [Unknown]
  - Breast lump removal [Unknown]
  - Thermal burn [Unknown]
  - Hysterectomy [Unknown]
  - Osteoporosis [Unknown]
  - Hypercholesterolaemia [Unknown]
  - Restless legs syndrome [Unknown]
  - Cholelithiasis [Unknown]
  - Hypokalaemia [Unknown]
  - Pulmonary fibrosis [Unknown]
  - Lung disorder [Unknown]
  - Hepatic cyst [Unknown]
  - Cholecystitis chronic [Not Recovered/Not Resolved]
  - Hypokalaemia [Unknown]
  - Hypoalbuminaemia [Unknown]
  - Hypophosphataemia [Unknown]
  - Hypochloraemia [Unknown]
  - Hypermagnesaemia [Unknown]
  - Haemorrhagic anaemia [Unknown]
  - Accelerated hypertension [Unknown]
  - Arthritis [Unknown]
  - Hypothyroidism [Unknown]
  - Fungal test positive [Unknown]
  - Ascites [Unknown]
  - Post procedural fistula [Unknown]
  - Wound infection [Unknown]
  - Impaired healing [Unknown]
  - Peripheral sensory neuropathy [Recovering/Resolving]
  - Feeding tube complication [Unknown]
  - Bloody discharge [Unknown]
  - Intervertebral disc degeneration [Unknown]
  - Stress [Not Recovered/Not Resolved]
  - Weight decreased [Unknown]
  - Treatment noncompliance [Unknown]
  - Tonsillectomy [Unknown]
  - Carpal tunnel syndrome [Unknown]
  - Bipolar disorder [Unknown]
  - Insomnia [Unknown]
  - Onychomycosis [Unknown]
  - Exostosis [Unknown]
  - Faecal incontinence [Unknown]
  - Epicondylitis [Unknown]
  - Bursitis [Unknown]
  - Post-traumatic stress disorder [Unknown]
  - Stress urinary incontinence [Unknown]
  - Hyperglycaemia [Unknown]
  - Hepatic steatosis [Unknown]
  - Hypocalcaemia [Unknown]
  - Hyperglycaemia [Not Recovered/Not Resolved]
  - Leukocytosis [Unknown]
  - Depression [Unknown]
  - Asthma [Unknown]
  - Hypertension [Unknown]
  - Dizziness [Recovered/Resolved]
  - Vertigo [Recovering/Resolving]
  - Palpitations [Unknown]
  - Diarrhoea [Unknown]
  - Gastrooesophageal reflux disease [Unknown]
  - Back pain [Unknown]
